FAERS Safety Report 8926399 (Version 1)
Quarter: 2012Q4

REPORT INFORMATION
  Report Type: 
  Country: US (occurrence: US)
  Receive Date: 20121127
  Receipt Date: 20121127
  Transmission Date: 20130627
  Serious: Yes (Death)
  Sender: FDA-Public Use
  Company Number: US-PFIZER INC-2012294853

PATIENT
  Age: 28 Year
  Sex: Female

DRUGS (1)
  1. INLYTA [Suspect]
     Indication: KIDNEY CARCINOMA
     Dosage: 5 mg, Take 2 tablets twice a day
     Dates: start: 20120302

REACTIONS (1)
  - Death [Fatal]
